FAERS Safety Report 8076706-2 (Version None)
Quarter: 2012Q1

REPORT INFORMATION
  Report Type: 
  Country: None (occurrence: None)
  Receive Date: 20120127
  Receipt Date: 20120124
  Transmission Date: 20120608
  Serious: Yes (Other)
  Sender: FDA-Public Use
  Company Number: TW-BAYER-2011-089751

PATIENT
  Age: 72 Year
  Sex: Male
  Weight: 59 kg

DRUGS (37)
  1. MEK INHIBITOR (DIHYDROXYPROP-DIFLU-METHOXYPHEN-CYCLOPROPA-SULFAMI) [Suspect]
     Dosage: 50 MG, QD
     Dates: start: 20110830, end: 20110830
  2. MEK INHIBITOR (DIHYDROXYPROP-DIFLU-METHOXYPHEN-CYCLOPROPA-SULFAMI) [Suspect]
     Dosage: 50 MG, QD
     Dates: start: 20110927, end: 20110927
  3. SORAFENIB (RAF KINASE INHIBITOR) [Suspect]
     Indication: HEPATIC NEOPLASM MALIGNANT
     Dosage: DAILY DOSE 600 MG
     Route: 048
     Dates: start: 20110304, end: 20110304
  4. SORAFENIB (RAF KINASE INHIBITOR) [Suspect]
     Dosage: DAILY DOSE 600 MG
     Route: 048
     Dates: start: 20110305, end: 20110323
  5. SORAFENIB (RAF KINASE INHIBITOR) [Suspect]
     Dosage: 400 MG, QD
     Dates: start: 20110407, end: 20110407
  6. MEK INHIBITOR (DIHYDROXYPROP-DIFLU-METHOXYPHEN-CYCLOPROPA-SULFAMI) [Suspect]
     Dosage: 50 MG, QD
     Dates: start: 20110818, end: 20110819
  7. MEK INHIBITOR (DIHYDROXYPROP-DIFLU-METHOXYPHEN-CYCLOPROPA-SULFAMI) [Suspect]
     Dosage: 30 MG, BID
     Dates: start: 20111028, end: 20111109
  8. SORAFENIB (RAF KINASE INHIBITOR) [Suspect]
     Dosage: 400 MG, QD
     Dates: start: 20110728, end: 20110728
  9. SORAFENIB (RAF KINASE INHIBITOR) [Suspect]
     Dosage: 400 MG, QD
     Dates: start: 20110927, end: 20110927
  10. SORAFENIB (RAF KINASE INHIBITOR) [Suspect]
     Dosage: 400 MG, BID
     Dates: start: 20110928, end: 20111019
  11. SORAFENIB (RAF KINASE INHIBITOR) [Suspect]
     Dosage: 400 MG, QD
     Dates: start: 20111028, end: 20111109
  12. MEK INHIBITOR (DIHYDROXYPROP-DIFLU-METHOXYPHEN-CYCLOPROPA-SULFAMI) [Suspect]
     Dosage: 30 MG, QD
     Dates: start: 20111110, end: 20111110
  13. MEK INHIBITOR (DIHYDROXYPROP-DIFLU-METHOXYPHEN-CYCLOPROPA-SULFAMI) [Suspect]
     Dosage: 50 MG, BID
     Dates: start: 20110526, end: 20110615
  14. MEK INHIBITOR (DIHYDROXYPROP-DIFLU-METHOXYPHEN-CYCLOPROPA-SULFAMI) [Suspect]
     Dosage: 50 MG, QD
     Dates: start: 20110728, end: 20110728
  15. MEK INHIBITOR (DIHYDROXYPROP-DIFLU-METHOXYPHEN-CYCLOPROPA-SULFAMI) [Suspect]
     Dosage: 50 MG, QD
     Dates: start: 20111020, end: 20111020
  16. SORAFENIB (RAF KINASE INHIBITOR) [Suspect]
     Dosage: 400 MG, BID
     Dates: start: 20110729, end: 20110817
  17. SORAFENIB (RAF KINASE INHIBITOR) [Suspect]
     Dosage: 400 MG, QD
     Dates: start: 20111110, end: 20111110
  18. MEK INHIBITOR (DIHYDROXYPROP-DIFLU-METHOXYPHEN-CYCLOPROPA-SULFAMI) [Suspect]
     Dosage: 50 MG, QD
     Dates: start: 20110505, end: 20110505
  19. SORAFENIB (RAF KINASE INHIBITOR) [Suspect]
     Dosage: 400 MG, QD
     Dates: start: 20110505, end: 20110505
  20. SORAFENIB (RAF KINASE INHIBITOR) [Suspect]
     Dosage: 400 MG, BID
     Dates: start: 20110526, end: 20110615
  21. MEK INHIBITOR (DIHYDROXYPROP-DIFLU-METHOXYPHEN-CYCLOPROPA-SULFAMI) [Suspect]
     Indication: HEPATIC NEOPLASM MALIGNANT
     Dosage: 50 MG, BID
     Dates: start: 20110304, end: 20110304
  22. MEK INHIBITOR (DIHYDROXYPROP-DIFLU-METHOXYPHEN-CYCLOPROPA-SULFAMI) [Suspect]
     Dosage: 50 MG, BID
     Dates: start: 20110616, end: 20110706
  23. MEK INHIBITOR (DIHYDROXYPROP-DIFLU-METHOXYPHEN-CYCLOPROPA-SULFAMI) [Suspect]
     Dosage: 50 MG, QD
     Dates: start: 20110707, end: 20110707
  24. MEK INHIBITOR (DIHYDROXYPROP-DIFLU-METHOXYPHEN-CYCLOPROPA-SULFAMI) [Suspect]
     Dosage: 30 MG, QD
     Dates: start: 20111027, end: 20111027
  25. MEK INHIBITOR (DIHYDROXYPROP-DIFLU-METHOXYPHEN-CYCLOPROPA-SULFAMI) [Suspect]
     Dosage: 50 MG, BID
     Dates: start: 20110305, end: 20110323
  26. MEK INHIBITOR (DIHYDROXYPROP-DIFLU-METHOXYPHEN-CYCLOPROPA-SULFAMI) [Suspect]
     Dosage: 50 MG, BID
     Dates: start: 20110324, end: 20110406
  27. MEK INHIBITOR (DIHYDROXYPROP-DIFLU-METHOXYPHEN-CYCLOPROPA-SULFAMI) [Suspect]
     Dosage: 50 MG, BID
     Dates: start: 20110729, end: 20110817
  28. SORAFENIB (RAF KINASE INHIBITOR) [Suspect]
     Dosage: 400 MG, QD
     Dates: start: 20110830, end: 20110830
  29. SORAFENIB (RAF KINASE INHIBITOR) [Suspect]
     Dosage: 400 MG, QD
     Dates: start: 20111020, end: 20111020
  30. MEK INHIBITOR (DIHYDROXYPROP-DIFLU-METHOXYPHEN-CYCLOPROPA-SULFAMI) [Suspect]
     Dosage: UNK, BID
     Dates: start: 20110407, end: 20110407
  31. MEK INHIBITOR (DIHYDROXYPROP-DIFLU-METHOXYPHEN-CYCLOPROPA-SULFAMI) [Suspect]
     Dosage: 50 MG, BID
     Dates: start: 20110506, end: 20110525
  32. MEK INHIBITOR (DIHYDROXYPROP-DIFLU-METHOXYPHEN-CYCLOPROPA-SULFAMI) [Suspect]
     Dosage: 50 MG, BID
     Dates: start: 20110928, end: 20111019
  33. SORAFENIB (RAF KINASE INHIBITOR) [Suspect]
     Dosage: DAILY DOSE 800 MG
     Dates: start: 20110324, end: 20110406
  34. SORAFENIB (RAF KINASE INHIBITOR) [Suspect]
     Dosage: 400 MG, BID
     Dates: start: 20110506, end: 20110525
  35. SORAFENIB (RAF KINASE INHIBITOR) [Suspect]
     Dosage: 400 MG, BID
     Dates: start: 20110616, end: 20110706
  36. SORAFENIB (RAF KINASE INHIBITOR) [Suspect]
     Dosage: 400 MG, QD
     Dates: start: 20110707, end: 20110707
  37. SORAFENIB (RAF KINASE INHIBITOR) [Suspect]
     Dosage: 400 MG, BID
     Dates: start: 20110818, end: 20110829

REACTIONS (5)
  - ASPARTATE AMINOTRANSFERASE INCREASED [None]
  - HALLUCINATION [None]
  - MENTAL IMPAIRMENT [None]
  - CEREBRAL VENTRICLE DILATATION [None]
  - CEREBRAL ATROPHY [None]
